FAERS Safety Report 17215946 (Version 1)
Quarter: 2019Q4

REPORT INFORMATION
  Report Type: Spontaneous
  Country: US (occurrence: US)
  Receive Date: 20191230
  Receipt Date: 20191230
  Transmission Date: 20200122
  Serious: No
  Sender: FDA-Public Use
  Company Number: US-SA-2019SA352815

PATIENT
  Age: 62 Year

DRUGS (1)
  1. DUPIXENT [Suspect]
     Active Substance: DUPILUMAB
     Indication: PRODUCT USED FOR UNKNOWN INDICATION
     Dosage: 300 MG, QOW
     Route: 058

REACTIONS (5)
  - Injection site reaction [Unknown]
  - Erythema [Unknown]
  - Feeling hot [Unknown]
  - Pyrexia [Unknown]
  - Mobility decreased [Unknown]

NARRATIVE: CASE EVENT DATE: 20191211
